FAERS Safety Report 24709421 (Version 1)
Quarter: 2024Q4

REPORT INFORMATION
  Report Type: Spontaneous
  Country: BR (occurrence: BR)
  Receive Date: 20241209
  Receipt Date: 20241209
  Transmission Date: 20250114
  Serious: Yes (Death, Other)
  Sender: STRIDES
  Company Number: BR-STRIDES ARCOLAB LIMITED-2024SP016225

PATIENT
  Sex: Female

DRUGS (2)
  1. TACROLIMUS [Suspect]
     Active Substance: TACROLIMUS
     Indication: Immunosuppressant drug therapy
     Dosage: UNK
     Route: 065
  2. TACROLIMUS [Suspect]
     Active Substance: TACROLIMUS
     Indication: Liver transplant

REACTIONS (4)
  - Death [Fatal]
  - Cholangitis sclerosing [Unknown]
  - Disease recurrence [Unknown]
  - Hepatic cirrhosis [Unknown]
